FAERS Safety Report 12914739 (Version 1)
Quarter: 2016Q4

REPORT INFORMATION
  Report Type: Spontaneous
  Country: US (occurrence: US)
  Receive Date: 20161106
  Receipt Date: 20161106
  Transmission Date: 20170207
  Serious: No
  Sender: FDA-Public Use
  Company Number: US-RELYPSA-RLY2016001893

PATIENT
  Sex: Female

DRUGS (12)
  1. ELIQUIS [Concomitant]
     Active Substance: APIXABAN
  2. LEVOTHYROXINE SODIUM. [Concomitant]
     Active Substance: LEVOTHYROXINE SODIUM
  3. ALLOPURINOL                        /00003302/ [Concomitant]
     Active Substance: ALLOPURINOL
  4. METOPROLOL SUCCINATE W/METOPROLOL TARTRATE [Concomitant]
  5. OMEPRAZOLE. [Concomitant]
     Active Substance: OMEPRAZOLE
  6. VELTASSA [Suspect]
     Active Substance: PATIROMER
     Indication: HYPERKALAEMIA
     Dosage: 8.4 G, QD
     Route: 048
  7. ZOLPIDEM TARTRATE. [Concomitant]
     Active Substance: ZOLPIDEM TARTRATE
  8. COLACE [Concomitant]
     Active Substance: DOCUSATE SODIUM
  9. ASPIRIN                            /00002701/ [Concomitant]
     Active Substance: ASPIRIN
  10. VITAMIN B COMPLEX [Concomitant]
     Active Substance: CYANOCOBALAMIN\DEXPANTHENOL\NIACINAMIDE\PYRIDOXINE HYDROCHLORIDE\RIBOFLAVIN 5^-PHOSPHATE SODIUM\THIAMINE HYDROCHLORIDE\VITAMIN B COMPLEX
  11. IRON [Concomitant]
     Active Substance: IRON
  12. LEXAPRO [Concomitant]
     Active Substance: ESCITALOPRAM OXALATE

REACTIONS (1)
  - Constipation [Unknown]
